FAERS Safety Report 4517782-0 (Version None)
Quarter: 2004Q4

REPORT INFORMATION
  Report Type: 
  Country: None (occurrence: None)
  Receive Date: 20041130
  Receipt Date: 20041117
  Transmission Date: 20050328
  Serious: Yes (Other)
  Sender: FDA-Public Use
  Company Number: 2004079309

PATIENT
  Sex: Female

DRUGS (1)
  1. FELDENE [Suspect]
     Indication: VAGINAL HAEMORRHAGE
     Dosage: 20 MG (20 MG, 1 IN 1 D) ORAL
     Route: 048
     Dates: start: 20041003, end: 20041004

REACTIONS (4)
  - DRUG HYPERSENSITIVITY [None]
  - FACE OEDEMA [None]
  - LOCALISED OEDEMA [None]
  - OEDEMA PERIPHERAL [None]
